FAERS Safety Report 6552050-7 (Version None)
Quarter: 2009Q4

REPORT INFORMATION
  Report Type: 
  Country: None (occurrence: None)
  Receive Date: 20091215
  Receipt Date: 20090401
  Transmission Date: 20100525
  Serious: Yes (Hospitalization)
  Sender: FDA-Public Use
  Company Number: FEI2009-0707

PATIENT
  Age: 36 Year
  Sex: Female
  Weight: 65.7716 kg

DRUGS (2)
  1. PARAGARD T 380A [Suspect]
     Indication: CONTRACEPTION
     Dosage: INTRA-UTERINE
     Route: 015
     Dates: start: 20070101, end: 20080403
  2. PULMICORT [Concomitant]

REACTIONS (7)
  - DISCOMFORT [None]
  - PELVIC PAIN [None]
  - PROCTALGIA [None]
  - PYREXIA [None]
  - UNINTENDED PREGNANCY [None]
  - UTERINE ABSCESS [None]
  - UTERINE PERFORATION [None]
